FAERS Safety Report 9060358 (Version 1)
Quarter: 2013Q1

REPORT INFORMATION
  Report Type: Spontaneous
  Country: BB (occurrence: BB)
  Receive Date: 20130212
  Receipt Date: 20130212
  Transmission Date: 20140127
  Serious: Yes (Death, Hospitalization)
  Sender: FDA-Public Use
  Company Number: BB-B.I. PHARMACEUTICALS,INC./RIDGEFIELD-2013-CN-00197CN

PATIENT
  Sex: Female

DRUGS (1)
  1. PRADAX [Suspect]
     Indication: ATRIAL FIBRILLATION
     Dosage: 300 MG

REACTIONS (2)
  - Embolic stroke [Fatal]
  - Gastrointestinal haemorrhage [Unknown]
